FAERS Safety Report 5644609-6 (Version None)
Quarter: 2008Q1

REPORT INFORMATION
  Report Type: 
  Country: None (occurrence: None)
  Receive Date: 20080229
  Receipt Date: 20080220
  Transmission Date: 20080703
  Serious: Yes (Death)
  Sender: FDA-Public Use
  Company Number: GB-AMGEN-US266449

PATIENT
  Sex: Male
  Weight: 65 kg

DRUGS (13)
  1. ENBREL [Suspect]
     Indication: RHEUMATOID ARTHRITIS
     Route: 058
     Dates: start: 20030101
  2. FUROSEMIDE [Concomitant]
     Indication: CARDIAC FAILURE CONGESTIVE
     Dosage: UNKNOWN
     Route: 048
  3. FUROSEMIDE [Concomitant]
     Indication: MYOCARDIAL ISCHAEMIA
  4. METOPROLOL TARTRATE [Concomitant]
     Indication: CARDIAC FAILURE CONGESTIVE
     Dosage: UNKNOWN
     Route: 048
  5. METOPROLOL TARTRATE [Concomitant]
     Indication: MYOCARDIAL ISCHAEMIA
  6. PERINDOPRIL [Concomitant]
     Indication: CARDIAC FAILURE CONGESTIVE
     Dosage: UNKNOWN
     Route: 048
  7. PERINDOPRIL [Concomitant]
     Indication: MYOCARDIAL ISCHAEMIA
  8. SIMVASTATIN [Concomitant]
     Indication: BLOOD CHOLESTEROL INCREASED
     Dosage: UNKNOWN
     Route: 048
  9. CO-CODAMOL [Concomitant]
     Indication: PAIN
     Dosage: UNKNOWN
     Route: 048
  10. ISMN [Concomitant]
     Indication: MYOCARDIAL ISCHAEMIA
     Dosage: UNKNOWN
     Route: 048
  11. WARFARIN SODIUM [Concomitant]
     Indication: CEREBROVASCULAR ACCIDENT
     Dosage: UNKNOWN
     Route: 048
  12. WARFARIN SODIUM [Concomitant]
     Indication: ATRIAL FIBRILLATION
  13. RISEDRONATE SODIUM [Concomitant]
     Indication: OSTEOPOROSIS
     Dosage: UNKNOWN
     Route: 048

REACTIONS (5)
  - CARDIAC ARREST [None]
  - CARDIAC FAILURE ACUTE [None]
  - CONCOMITANT DISEASE PROGRESSION [None]
  - DISEASE PROGRESSION [None]
  - MYOCARDIAL ISCHAEMIA [None]
